FAERS Safety Report 8499173-3 (Version None)
Quarter: 2012Q2

REPORT INFORMATION
  Report Type: 
  Country: None (occurrence: None)
  Receive Date: 20120405
  Receipt Date: 20100623
  Transmission Date: 20120825
  Serious: Yes (Other)
  Sender: FDA-Public Use
  Company Number: PHHY2010US42483

PATIENT
  Age: 61 Year
  Sex: Female

DRUGS (5)
  1. DIOVAN [Concomitant]
  2. VITAMINS (NO INGREDIENTS/SUBSTANCES) [Concomitant]
  3. FASLODEX [Concomitant]
  4. RECLAST [Suspect]
     Dosage: INTRAVENOUS
     Route: 042
     Dates: start: 20100430
  5. CALTRATE + D (CALCIUM CARBONATE, COLECALCIFEROL) [Concomitant]

REACTIONS (9)
  - FULL BLOOD COUNT DECREASED [None]
  - JOINT STIFFNESS [None]
  - OEDEMA MOUTH [None]
  - WEIGHT DECREASED [None]
  - NAUSEA [None]
  - FEELING ABNORMAL [None]
  - EATING DISORDER [None]
  - TOOTH IMPACTED [None]
  - ORAL DISCOMFORT [None]
